FAERS Safety Report 24433718 (Version 2)
Quarter: 2025Q1

REPORT INFORMATION
  Report Type: Spontaneous
  Country: US (occurrence: US)
  Receive Date: 20241014
  Receipt Date: 20250107
  Transmission Date: 20250408
  Serious: Yes (Life-Threatening, Other)
  Sender: OTSUKA
  Company Number: US-OTSUKA-2024_027776

PATIENT
  Age: 85 Year
  Sex: Female
  Weight: 63.04 kg

DRUGS (1)
  1. REXULTI [Suspect]
     Active Substance: BREXPIPRAZOLE
     Indication: Dementia
     Dosage: 0.5 MG, QD
     Route: 065
     Dates: start: 20240911

REACTIONS (1)
  - International normalised ratio increased [Recovered/Resolved]

NARRATIVE: CASE EVENT DATE: 20240915
